FAERS Safety Report 9995729 (Version 2)
Quarter: 2014Q1

REPORT INFORMATION
  Report Type: Spontaneous
  Country: ES (occurrence: ES)
  Receive Date: 20140311
  Receipt Date: 20140314
  Transmission Date: 20141002
  Serious: Yes (Hospitalization, Other)
  Sender: FDA-Public Use
  Company Number: ES-SA-2014SA028577

PATIENT
  Age: 73 Year
  Sex: Female
  Weight: 105 kg

DRUGS (10)
  1. MULTAQ [Suspect]
     Indication: ATRIAL FIBRILLATION
     Route: 048
     Dates: start: 2005
  2. ADIRO [Interacting]
     Indication: ANTIPLATELET THERAPY
     Dosage: 0-1-0-0
     Route: 048
     Dates: start: 2005, end: 20140208
  3. SINTROM [Interacting]
     Indication: ANTIPLATELET THERAPY
     Route: 048
     Dates: start: 2005
  4. OMEPRAZOLE [Interacting]
     Indication: PROPHYLAXIS
     Route: 048
     Dates: start: 2005
  5. ROSUVASTATIN [Interacting]
     Indication: PRODUCT USED FOR UNKNOWN INDICATION
     Route: 048
     Dates: start: 2005
  6. EPLERENONE [Concomitant]
     Indication: CARDIAC FAILURE CONGESTIVE
     Route: 048
  7. HYDROCHLOROTHIAZIDE/VALSARTAN [Concomitant]
     Indication: CARDIAC FAILURE CONGESTIVE
     Dosage: 80MG/12.5MG
     Route: 048
  8. FUROSEMIDA [Concomitant]
     Indication: CARDIAC FAILURE CONGESTIVE
     Route: 048
  9. ALLOPURINOL [Concomitant]
     Indication: PRODUCT USED FOR UNKNOWN INDICATION
     Route: 048
  10. INDACATEROL MALEATE [Concomitant]
     Indication: PRODUCT USED FOR UNKNOWN INDICATION
     Route: 065

REACTIONS (4)
  - Renal failure acute [Recovered/Resolved]
  - Haemangioma [Not Recovered/Not Resolved]
  - Melaena [Recovered/Resolved]
  - Anaemia [Recovered/Resolved]
